FAERS Safety Report 11573121 (Version 2)
Quarter: 2015Q4

REPORT INFORMATION
  Report Type: Spontaneous
  Country: US (occurrence: US)
  Receive Date: 20150916
  Receipt Date: 20151027
  Transmission Date: 20160304
  Serious: No
  Sender: FDA-Public Use
  Company Number: US-ELI_LILLY_AND_COMPANY-US200910006426

PATIENT
  Age: 45 Year
  Sex: Female

DRUGS (1)
  1. FORTEO [Suspect]
     Active Substance: TERIPARATIDE
     Indication: OSTEOPOROSIS
     Dates: start: 2009

REACTIONS (7)
  - Joint injury [Unknown]
  - Upper limb fracture [Unknown]
  - Nausea [Recovered/Resolved]
  - Fall [Unknown]
  - Fall [Recovered/Resolved]
  - Migraine [Not Recovered/Not Resolved]
  - Muscle spasms [Recovering/Resolving]
